FAERS Safety Report 11230449 (Version 1)
Quarter: 2015Q2

REPORT INFORMATION
  Report Type: Spontaneous
  Country: US (occurrence: None)
  Receive Date: 20150630
  Receipt Date: 20150630
  Transmission Date: 20150821
  Serious: Yes (Other)
  Sender: FDA-Public Use
  Company Number: None

PATIENT
  Age: 27 Year
  Sex: Male
  Weight: 112.49 kg

DRUGS (7)
  1. CLAZAPAM [Concomitant]
  2. GEMFIBSAL [Concomitant]
  3. CYBALTIA [Concomitant]
  4. MIRTAZAPINE. [Concomitant]
     Active Substance: MIRTAZAPINE
  5. ZYPREXA [Concomitant]
     Active Substance: OLANZAPINE
  6. MIRTAZAPINE. [Suspect]
     Active Substance: MIRTAZAPINE
     Indication: DEPRESSION
     Route: 048
  7. HIGH BLOOD PRESSURE PILL [Concomitant]
     Active Substance: UNSPECIFIED INGREDIENT

REACTIONS (4)
  - Weight increased [None]
  - Cough [None]
  - Blood pressure increased [None]
  - Blood cholesterol increased [None]

NARRATIVE: CASE EVENT DATE: 20150629
